FAERS Safety Report 5156976-0 (Version None)
Quarter: 2006Q4

REPORT INFORMATION
  Report Type: 
  Country: None (occurrence: None)
  Receive Date: 20061124
  Receipt Date: 20061027
  Transmission Date: 20070319
  Serious: Yes (Hospitalization)
  Sender: FDA-Public Use
  Company Number: UA-ROCHE-471984

PATIENT
  Age: 57 Year
  Sex: Female
  Weight: 63 kg

DRUGS (2)
  1. CAPECITABINE [Suspect]
     Indication: BREAST CANCER METASTATIC
     Dosage: UNREPORTED ROUTE AND FREQUENCY
     Route: 065
     Dates: start: 20060925
  2. BLINDED BEVACIZUMAB [Suspect]
     Indication: BREAST CANCER METASTATIC
     Route: 042
     Dates: start: 20060925

REACTIONS (2)
  - GASTRIC CANCER [None]
  - GASTRITIS EROSIVE [None]
